FAERS Safety Report 22390271 (Version 1)
Quarter: 2023Q2

REPORT INFORMATION
  Report Type: Spontaneous
  Country: IT (occurrence: IT)
  Receive Date: 20230531
  Receipt Date: 20230531
  Transmission Date: 20230722
  Serious: Yes (Life-Threatening)
  Sender: FDA-Public Use
  Company Number: None

PATIENT
  Age: 51 Year
  Sex: Female

DRUGS (2)
  1. ADALIMUMAB [Suspect]
     Active Substance: ADALIMUMAB
     Indication: Spondylitis
     Dosage: UNK
     Route: 058
  2. ADALIMUMAB [Suspect]
     Active Substance: ADALIMUMAB
     Dosage: 40 MILLIGRAM, Q2W,ADALIMUMAB FL SC 40 MG 1 FL SC
     Route: 058
     Dates: start: 202011, end: 202302

REACTIONS (1)
  - Sarcoma uterus [Not Recovered/Not Resolved]

NARRATIVE: CASE EVENT DATE: 20230101
